FAERS Safety Report 8460581-8 (Version None)
Quarter: 2012Q2

REPORT INFORMATION
  Report Type: 
  Country: None (occurrence: None)
  Receive Date: 20120622
  Receipt Date: 20120508
  Transmission Date: 20120825
  Serious: No
  Sender: FDA-Public Use
  Company Number: US-ASTRAZENECA-2012SE25048

PATIENT
  Age: 33 Year
  Sex: Male

DRUGS (4)
  1. BRILINTA [Suspect]
     Route: 048
     Dates: start: 20120408
  2. ASPIRIN [Concomitant]
     Route: 048
  3. METOPROLOL TARTRATE [Concomitant]
     Route: 048
  4. LISINOPRIL [Concomitant]
     Route: 048

REACTIONS (1)
  - HAEMATOCHEZIA [None]
